FAERS Safety Report 5376340-9 (Version None)
Quarter: 2007Q3

REPORT INFORMATION
  Report Type: 
  Country: None (occurrence: None)
  Receive Date: 20070702
  Receipt Date: 20070621
  Transmission Date: 20080115
  Serious: Yes (Hospitalization, Other)
  Sender: FDA-Public Use
  Company Number: JP-PFIZER INC-2007052173

PATIENT
  Age: 6 Year
  Sex: Male

DRUGS (1)
  1. SOLU-CORTEF [Suspect]
     Dosage: DAILY DOSE:400MG
     Route: 042

REACTIONS (1)
  - HEPATOMEGALY [None]
